FAERS Safety Report 25219461 (Version 6)
Quarter: 2025Q4

REPORT INFORMATION
  Report Type: Report from Study
  Country: EU (occurrence: EU)
  Receive Date: 20250421
  Receipt Date: 20251106
  Transmission Date: 20260119
  Serious: Yes (Other)
  Sender: AMGEN
  Company Number: EU-SAKK-2024SA370750AA

PATIENT
  Age: 73 Year
  Sex: Female

DRUGS (3)
  1. CARFILZOMIB [Suspect]
     Active Substance: CARFILZOMIB
     Indication: Plasma cell myeloma refractory
     Dosage: UNK
     Route: 065
  2. ISATUXIMAB [Suspect]
     Active Substance: ISATUXIMAB
     Indication: Plasma cell myeloma refractory
     Dosage: UNK
     Route: 065
  3. DEXAMETHASONE [Suspect]
     Active Substance: DEXAMETHASONE
     Indication: Plasma cell myeloma refractory
     Dosage: UNK
     Route: 065

REACTIONS (11)
  - Chronic kidney disease [Recovered/Resolved]
  - Chronic kidney disease [Recovered/Resolved]
  - Chronic kidney disease [Recovered/Resolved]
  - Chronic kidney disease [Recovered/Resolved]
  - Chronic kidney disease [Recovered/Resolved]
  - Chronic kidney disease [Recovered/Resolved]
  - Chronic kidney disease [Recovered/Resolved]
  - Chronic kidney disease [Recovered/Resolved]
  - Chronic kidney disease [Recovered/Resolved]
  - Chronic kidney disease [Not Recovered/Not Resolved]
  - Fatigue [Not Recovered/Not Resolved]

NARRATIVE: CASE EVENT DATE: 20240419
